FAERS Safety Report 15044702 (Version 5)
Quarter: 2018Q4

REPORT INFORMATION
  Report Type: Spontaneous
  Country: US (occurrence: US)
  Receive Date: 20180621
  Receipt Date: 20181026
  Transmission Date: 20190204
  Serious: No
  Sender: FDA-Public Use
  Company Number: US-PFIZER INC-2018250732

PATIENT
  Age: 66 Year
  Sex: Male
  Weight: 72 kg

DRUGS (7)
  1. LATANOPROST. [Suspect]
     Active Substance: LATANOPROST
     Dosage: 1 GTT, 1X/DAY
     Dates: start: 201711
  2. LATANOPROST. [Suspect]
     Active Substance: LATANOPROST
     Indication: INTRAOCULAR PRESSURE INCREASED
     Dosage: 2 GTT, 1X/DAY (ONE DROP PER EYE IN EVENING)
  3. LATANOPROST. [Suspect]
     Active Substance: LATANOPROST
     Indication: GLAUCOMA
     Dosage: 2 GTT, 1X/DAY (ONE DROP PER EYE IN EVENING)
     Dates: end: 2015
  4. LATANOPROST. [Suspect]
     Active Substance: LATANOPROST
     Dosage: 2 GTT, 1X/DAY
     Dates: start: 201606
  5. LATANOPROST. [Suspect]
     Active Substance: LATANOPROST
     Dosage: 1 GTT, 1X/DAY
     Dates: start: 201711
  6. SYSTANE BALANCE [Concomitant]
     Active Substance: PROPYLENE GLYCOL
     Dosage: UNK UNK, AS NEEDED (ONLY OCCASIONALLY)
     Dates: start: 2018
  7. LATANOPROST. [Suspect]
     Active Substance: LATANOPROST
     Dosage: 2 GTT, 1X/DAY
     Dates: start: 201606

REACTIONS (3)
  - Vision blurred [Not Recovered/Not Resolved]
  - Erythema of eyelid [Not Recovered/Not Resolved]
  - Blepharal pigmentation [Not Recovered/Not Resolved]

NARRATIVE: CASE EVENT DATE: 201606
